FAERS Safety Report 19295876 (Version 2)
Quarter: 2021Q2

REPORT INFORMATION
  Report Type: Other
  Country: CZ (occurrence: CZ)
  Receive Date: 20210524
  Receipt Date: 20210621
  Transmission Date: 20210717
  Serious: Yes (Other)
  Sender: FDA-Public Use
  Company Number: CZ-ROCHE-2834577

PATIENT
  Age: 57 Year
  Sex: Female

DRUGS (4)
  1. NIMESULID [Suspect]
     Active Substance: NIMESULIDE
     Indication: PAIN
     Dosage: GRANULATE
     Route: 065
     Dates: start: 202008
  2. PEMETREXED. [Suspect]
     Active Substance: PEMETREXED
     Indication: PRODUCT USED FOR UNKNOWN INDICATION
     Dosage: UNK
     Route: 065
  3. ATEZOLIZUMAB. [Suspect]
     Active Substance: ATEZOLIZUMAB
     Indication: PRODUCT USED FOR UNKNOWN INDICATION
     Dosage: UNK
     Route: 065
     Dates: start: 202008
  4. CISPLATIN. [Suspect]
     Active Substance: CISPLATIN
     Indication: PRODUCT USED FOR UNKNOWN INDICATION
     Dosage: UNK
     Route: 065

REACTIONS (16)
  - Headache [Unknown]
  - Respiratory failure [Unknown]
  - Inadequate analgesia [Recovered/Resolved]
  - Anaemia [Unknown]
  - Visual impairment [Unknown]
  - Vomiting [Unknown]
  - Gamma-glutamyltransferase increased [Recovered/Resolved]
  - Alanine aminotransferase increased [Recovered/Resolved]
  - Malignant neoplasm progression [Unknown]
  - Hypoacusis [Unknown]
  - Blood alkaline phosphatase increased [Recovered/Resolved]
  - Aspartate aminotransferase increased [Recovered/Resolved]
  - Pulmonary embolism [Unknown]
  - Haemoptysis [Unknown]
  - Cognitive disorder [Unknown]
  - Carcinoembryonic antigen increased [Recovered/Resolved]
